FAERS Safety Report 7280874-X (Version None)
Quarter: 2011Q1

REPORT INFORMATION
  Report Type: 
  Country: None (occurrence: None)
  Receive Date: 20110208
  Receipt Date: 20110127
  Transmission Date: 20110831
  Serious: Yes (Hospitalization)
  Sender: FDA-Public Use
  Company Number: JP-AMGEN-JPNCT2011000264

PATIENT
  Age: 76 Year
  Sex: Male
  Weight: 77 kg

DRUGS (14)
  1. CLARITH [Concomitant]
     Dosage: UNK
     Route: 048
  2. ALDACTONE [Concomitant]
     Dosage: UNK
     Route: 048
  3. OXINORM [Concomitant]
     Dosage: UNK
     Route: 048
  4. PANITUMUMAB [Suspect]
     Indication: COLORECTAL CANCER
     Dosage: 6 MG/KG, Q2WK
     Route: 041
     Dates: start: 20100623, end: 20100908
  5. HIRUDOID SOFT [Concomitant]
     Dosage: UNK
     Route: 062
  6. PANITUMUMAB [Suspect]
     Dosage: 6 MG/KG, Q2WK
     Route: 041
     Dates: start: 20101020
  7. ERBITUX [Suspect]
     Indication: COLORECTAL CANCER
     Dosage: UNK
     Route: 041
     Dates: start: 20091101, end: 20100601
  8. MYSLEE [Concomitant]
     Dosage: UNK
     Route: 048
  9. DUROTEP MT PATCH [Concomitant]
     Dosage: UNK
     Route: 062
  10. OLMETEC [Concomitant]
     Dosage: UNK
     Route: 048
  11. TAKEPRON OD TABLETS 15 [Concomitant]
     Dosage: UNK
     Route: 048
  12. LASIX [Concomitant]
     Dosage: UNK
     Route: 048
  13. LOXONIN [Concomitant]
     Dosage: UNK
     Route: 048
  14. LOCOID [Concomitant]
     Dosage: UNK
     Route: 062

REACTIONS (3)
  - ENTEROCOLITIS [None]
  - SKIN FISSURES [None]
  - PARONYCHIA [None]
